FAERS Safety Report 6436515-4 (Version None)
Quarter: 2009Q4

REPORT INFORMATION
  Report Type: 
  Country: None (occurrence: None)
  Receive Date: 20091111
  Receipt Date: 20091028
  Transmission Date: 20100525
  Serious: Yes (Death)
  Sender: FDA-Public Use
  Company Number: JP-GENENTECH-293344

PATIENT
  Age: 77 Year
  Sex: Male

DRUGS (5)
  1. RANIBIZUMAB [Suspect]
     Indication: MACULAR DEGENERATION
     Dosage: 0.05 ML, 1/MONTH
     Route: 031
     Dates: start: 20090521
  2. RANIBIZUMAB [Suspect]
     Dosage: 0.05 ML, 1/MONTH
     Route: 031
     Dates: start: 20090601
  3. RANIBIZUMAB [Suspect]
     Dosage: 0.05 ML, 1/MONTH
     Route: 031
     Dates: start: 20090701
  4. RANIBIZUMAB [Suspect]
     Dosage: 0.05 ML, 1/MONTH
     Route: 031
     Dates: start: 20090901
  5. RANIBIZUMAB [Suspect]
     Dosage: 0.05 ML, 1/MONTH
     Route: 031
     Dates: start: 20091002

REACTIONS (1)
  - MYOCARDIAL INFARCTION [None]
